FAERS Safety Report 13332728 (Version 1)
Quarter: 2017Q1

REPORT INFORMATION
  Report Type: Spontaneous
  Country: US (occurrence: US)
  Receive Date: 20170314
  Receipt Date: 20170314
  Transmission Date: 20170428
  Serious: Yes (Hospitalization)
  Sender: FDA-Public Use
  Company Number: None

PATIENT
  Age: 81 Year
  Sex: Male

DRUGS (10)
  1. SLFAMETHOX [Concomitant]
  2. LISINOPRIL. [Concomitant]
     Active Substance: LISINOPRIL
  3. METFORMIN [Concomitant]
     Active Substance: METFORMIN HYDROCHLORIDE
  4. METORPROL [Concomitant]
  5. LONSURF [Suspect]
     Active Substance: TIPIRACIL HYDROCHLORIDE\TRIFLURIDINE
     Indication: COLON CANCER
     Route: 048
     Dates: start: 20170301
  6. FOLIC ACID. [Concomitant]
     Active Substance: FOLIC ACID
  7. TORSEMIDE. [Concomitant]
     Active Substance: TORSEMIDE
  8. FAMOTIDINE. [Concomitant]
     Active Substance: FAMOTIDINE
  9. POTASSIMIN [Concomitant]
  10. SMZ/TMS DS [Concomitant]

REACTIONS (5)
  - Platelet count decreased [None]
  - Haemoglobin decreased [None]
  - Chest pain [None]
  - Therapy cessation [None]
  - Dyspepsia [None]

NARRATIVE: CASE EVENT DATE: 20170226
